FAERS Safety Report 16519921 (Version 2)
Quarter: 2019Q3

REPORT INFORMATION
  Report Type: Spontaneous
  Country: US (occurrence: US)
  Receive Date: 20190702
  Receipt Date: 20190702
  Transmission Date: 20191004
  Serious: No
  Sender: FDA-Public Use
  Company Number: US-GALDERMA-US18052040

PATIENT
  Age: 54 Year
  Sex: Female

DRUGS (16)
  1. PROACTIV SKIN CLEARING WATER GEL [Concomitant]
     Indication: RASH PAPULAR
  2. PROACTIV MD ADAPALENE ACNE TREATMENT [Suspect]
     Active Substance: ADAPALENE
     Indication: RASH PAPULAR
  3. PROACTIV MD DEEP CLEANSING FACE WASH [Concomitant]
     Active Substance: COSMETICS
     Indication: PRURITUS
     Route: 061
     Dates: start: 20180215, end: 201810
  4. LUTEIN [Concomitant]
     Active Substance: LUTEIN
  5. KRILL OIL [Concomitant]
     Active Substance: DIETARY SUPPLEMENT\KRILL OIL
  6. DS [Concomitant]
  7. PROACTIV MD DEEP CLEANSING FACE WASH [Concomitant]
     Active Substance: COSMETICS
     Indication: RASH PAPULAR
  8. VITAMIN B12 [Concomitant]
     Active Substance: CYANOCOBALAMIN
  9. PROACTIV MD DAILY OIL CONTROL SPF 30 [Suspect]
     Active Substance: AVOBENZONE\OCTISALATE\OCTOCRYLENE
     Indication: PRURITUS
     Route: 061
     Dates: start: 20180215, end: 201810
  10. PROACTIV SKIN CLEARING WATER GEL [Concomitant]
     Indication: PRURITUS
     Route: 061
     Dates: start: 20180215, end: 201810
  11. THYROID MEDICATION [Concomitant]
     Active Substance: UNSPECIFIED INGREDIENT
     Indication: THYROID DISORDER
  12. PROACTIV REPAIRING CONCEALER 2 BLENDABLE SHADES [Concomitant]
     Indication: PRURITUS
     Route: 061
     Dates: start: 20180215, end: 201810
  13. PROACTIV MD DAILY OIL CONTROL SPF 30 [Suspect]
     Active Substance: AVOBENZONE\OCTISALATE\OCTOCRYLENE
     Indication: RASH PAPULAR
  14. VITAMIN C [Concomitant]
     Active Substance: ASCORBIC ACID
  15. PROACTIV MD ADAPALENE ACNE TREATMENT [Suspect]
     Active Substance: ADAPALENE
     Indication: PRURITUS
     Dosage: 0.1%
     Route: 061
     Dates: start: 20180215, end: 201810
  16. PROACTIV REPAIRING CONCEALER 2 BLENDABLE SHADES [Concomitant]
     Indication: RASH PAPULAR

REACTIONS (4)
  - Swelling of eyelid [Recovered/Resolved]
  - Product use in unapproved indication [Recovered/Resolved]
  - Hypersensitivity [Recovered/Resolved]
  - Eye swelling [Recovered/Resolved]

NARRATIVE: CASE EVENT DATE: 20180215
